FAERS Safety Report 14305752 (Version 1)
Quarter: 2017Q4

REPORT INFORMATION
  Report Type: Spontaneous
  Country: US (occurrence: US)
  Receive Date: 20171219
  Receipt Date: 20171219
  Transmission Date: 20180321
  Serious: Yes (Hospitalization)
  Sender: FDA-Public Use
  Company Number: US-ALLERGAN-1770460US

PATIENT
  Sex: Female

DRUGS (1)
  1. VIBERZI [Suspect]
     Active Substance: ELUXADOLINE
     Indication: IRRITABLE BOWEL SYNDROME
     Dosage: UNK
     Route: 048
     Dates: start: 201708

REACTIONS (3)
  - Hepatic failure [Recovered/Resolved]
  - Colonoscopy abnormal [Recovered/Resolved]
  - Contraindicated drug prescribed [Unknown]

NARRATIVE: CASE EVENT DATE: 201708
